FAERS Safety Report 8828547 (Version 2)
Quarter: 2013Q4

REPORT INFORMATION
  Report Type: Report from Study
  Country: SE (occurrence: SE)
  Receive Date: 20121005
  Receipt Date: 20131211
  Transmission Date: 20140711
  Serious: Yes (Death, Hospitalization, Other)
  Sender: FDA-Public Use
  Company Number: SE-TEVA-362158ISR

PATIENT
  Age: 74 Year
  Sex: Female

DRUGS (21)
  1. METHOTREXATE [Suspect]
     Indication: RHEUMATOID ARTHRITIS
     Route: 048
     Dates: start: 20110523, end: 20120514
  2. PLACEBO [Suspect]
     Indication: RHEUMATOID ARTHRITIS
     Dates: start: 20110523, end: 20120514
  3. PREDNISOLONE [Concomitant]
     Dates: start: 20120619
  4. METHOTREXATE [Concomitant]
     Dates: start: 20120619
  5. METFORMIN MEDA [Concomitant]
     Dates: start: 20100511
  6. MINDIAB [Concomitant]
     Dates: start: 20100909
  7. KALCIPOS-D [Concomitant]
     Dates: start: 20120619
  8. FOLACIN [Concomitant]
     Dates: start: 20110523
  9. TENORMIN [Concomitant]
     Dates: start: 20110111
  10. LOSARTAN [Concomitant]
     Dates: start: 20110111
  11. SIMVASTATIN [Concomitant]
     Dates: start: 20110111
  12. VAGIFEM [Concomitant]
     Dates: start: 20110424
  13. LEVAXIN [Concomitant]
     Dates: start: 20100909
  14. RHINOCORT [Concomitant]
     Dates: start: 20110111
  15. ATROVENT INHALATION AEROSOL [Concomitant]
     Dates: start: 20110111
  16. SYMBICORT [Concomitant]
     Dates: start: 20100909
  17. LAKTULOS PHARMACIA [Concomitant]
     Dates: start: 20100511
  18. NAPROXEN [Concomitant]
     Dates: start: 20110512
  19. PANODIL [Concomitant]
     Dates: start: 20101111
  20. IMOVANE [Concomitant]
     Dates: start: 20110111
  21. ACETYLCYSTEINE [Concomitant]
     Dates: start: 20110111

REACTIONS (2)
  - Uterine cancer [Not Recovered/Not Resolved]
  - Respiratory failure [Fatal]
